FAERS Safety Report 11446512 (Version 1)
Quarter: 2015Q3

REPORT INFORMATION
  Report Type: Spontaneous
  Country: US (occurrence: US)
  Receive Date: 20150831
  Receipt Date: 20150831
  Transmission Date: 20151125
  Serious: No
  Sender: FDA-Public Use
  Company Number: US-ELI_LILLY_AND_COMPANY-US200811003670

PATIENT
  Age: 54 Year
  Sex: Female
  Weight: 47.62 kg

DRUGS (3)
  1. CYMBALTA [Suspect]
     Active Substance: DULOXETINE HYDROCHLORIDE
     Dosage: 60 MG, UNK
  2. CYMBALTA [Suspect]
     Active Substance: DULOXETINE HYDROCHLORIDE
     Indication: SPINOCEREBELLAR ATAXIA
     Dosage: 30 MG, DAILY (1/D)
     Dates: start: 20060111
  3. CYMBALTA [Suspect]
     Active Substance: DULOXETINE HYDROCHLORIDE
     Dosage: 20 MG, QOD

REACTIONS (4)
  - Sexual dysfunction [Not Recovered/Not Resolved]
  - Apathy [Not Recovered/Not Resolved]
  - Dysaesthesia [Not Recovered/Not Resolved]
  - Fatigue [Not Recovered/Not Resolved]
